FAERS Safety Report 6531025-8 (Version None)
Quarter: 2010Q1

REPORT INFORMATION
  Report Type: 
  Country: None (occurrence: None)
  Receive Date: 20100108
  Receipt Date: 20090922
  Transmission Date: 20100710
  Serious: No
  Sender: FDA-Public Use
  Company Number: A0808494A

PATIENT
  Age: 61 Year
  Sex: Male

DRUGS (8)
  1. LOVAZA [Suspect]
     Indication: LIPIDS INCREASED
     Dosage: 2CAP TWICE PER DAY
     Route: 048
     Dates: start: 20090918, end: 20090920
  2. GLYBURIDE [Concomitant]
  3. JANUVIA [Concomitant]
  4. ENALAPRIL [Concomitant]
  5. MICARDIS [Concomitant]
  6. CRESTOR [Concomitant]
  7. PLAVIX [Concomitant]
  8. NIASPAN [Concomitant]

REACTIONS (3)
  - ABDOMINAL DISCOMFORT [None]
  - DIARRHOEA [None]
  - FLUSHING [None]
